FAERS Safety Report 8124328-7 (Version None)
Quarter: 2012Q1

REPORT INFORMATION
  Report Type: 
  Country: None (occurrence: None)
  Receive Date: 20120209
  Receipt Date: 20120131
  Transmission Date: 20120608
  Serious: Yes (Other)
  Sender: FDA-Public Use
  Company Number: US-JNJFOC-20111000582

PATIENT
  Sex: Male
  Weight: 97.07 kg

DRUGS (17)
  1. ADVAIR DISKUS 100/50 [Concomitant]
     Indication: LUNG DISORDER
     Route: 048
     Dates: start: 20090101
  2. REMICADE [Suspect]
     Indication: RHEUMATOID ARTHRITIS
     Route: 042
     Dates: start: 20110701
  3. OXYGEN [Concomitant]
     Indication: LUNG DISORDER
     Route: 045
  4. DIAZEPAM [Concomitant]
     Indication: PAIN
     Route: 048
     Dates: start: 20090101
  5. AMBIEN [Concomitant]
     Indication: SLEEP DISORDER
     Route: 048
     Dates: start: 20090101
  6. ASPIRIN [Concomitant]
     Indication: CARDIAC DISORDER
     Route: 048
  7. CALTRATE + VITAMIN D [Concomitant]
     Indication: NUTRITIONAL SUPPORT
     Dosage: 1 IN AM AND PM
     Route: 048
  8. FOLIC ACID [Concomitant]
     Indication: RHEUMATOID ARTHRITIS
     Route: 048
  9. FUROSEMIDE [Concomitant]
     Indication: FLUID RETENTION
     Route: 048
  10. PREDNISONE TAB [Concomitant]
     Indication: BACK DISORDER
     Route: 048
     Dates: start: 20090101
  11. MORPHINE [Concomitant]
     Indication: PAIN
     Route: 048
     Dates: start: 20090101
  12. SENOKOT [Concomitant]
     Indication: ABNORMAL FAECES
  13. MULTI-VITAMINS [Concomitant]
     Indication: NUTRITIONAL SUPPORT
     Route: 048
  14. SPIRIVA [Concomitant]
     Indication: LUNG DISORDER
     Route: 048
     Dates: start: 20090101
  15. ALBUTEROL [Concomitant]
     Indication: LUNG DISORDER
     Route: 055
     Dates: start: 20090101
  16. METHOTREXATE [Concomitant]
     Indication: RHEUMATOID ARTHRITIS
     Route: 048
  17. OXYCODONE HCL [Concomitant]
     Indication: PAIN
     Route: 048
     Dates: start: 20090101

REACTIONS (2)
  - CONSTIPATION [None]
  - ABSCESS [None]
